FAERS Safety Report 8162624-8 (Version None)
Quarter: 2012Q1

REPORT INFORMATION
  Report Type: 
  Country: None (occurrence: None)
  Receive Date: 20120224
  Receipt Date: 20120214
  Transmission Date: 20120608
  Serious: Yes (Disabling, Other)
  Sender: FDA-Public Use
  Company Number: US-BAYER-2012-015271

PATIENT
  Age: 48 Year
  Sex: Female
  Weight: 90 kg

DRUGS (20)
  1. FUROSEMIDE [Concomitant]
     Indication: DIURETIC THERAPY
     Dosage: 40 MG, BID
  2. POTASSIUM CHLORIDE [Concomitant]
     Dosage: 8 MEQ, QD
  3. NITROSTAT [Concomitant]
     Indication: CHEST PAIN
     Dosage: 0.4 MG, PRN
  4. NORVASC [Concomitant]
     Dosage: UNK
  5. HUMULIN R [Concomitant]
     Indication: DIABETES MELLITUS
     Dosage: 24 UNK, UNK
  6. DEPAKOTE [Concomitant]
     Indication: CONVULSION
     Dosage: 500 MG, BID
     Route: 048
  7. SIMVASTATIN [Concomitant]
     Indication: BLOOD CHOLESTEROL INCREASED
     Dosage: 40 MG, UNK
     Route: 048
  8. GENERLAC [Concomitant]
     Indication: CROHN'S DISEASE
     Dosage: 30 MG, UNK
  9. DILANTIN [Concomitant]
     Indication: CONVULSION
     Dosage: 300 MG, BID
     Route: 048
  10. LOMOTIL [Suspect]
     Indication: CROHN'S DISEASE
     Dosage: 2.5 MG, 4 TIMES A DAY
  11. ATIVAN [Concomitant]
     Dosage: 1 MG, TID
  12. REMERON [Concomitant]
     Indication: INSOMNIA
     Dosage: 30 MG, QD
  13. METHOCARBAMOL [Concomitant]
     Indication: NEUROPATHY PERIPHERAL
  14. TYLENOL W/ CODEINE NO. 3 [Concomitant]
     Indication: MIGRAINE
     Dosage: UNK
  15. NEOMYCIN [Concomitant]
     Indication: DEPRESSION
  16. ASPIRIN [Suspect]
     Indication: CHEST PAIN
     Dosage: 81 MG, UNK
  17. LANTUS [Concomitant]
     Indication: DIABETES MELLITUS
     Dosage: 170 UNITS PER DAY
  18. ATENOLOL [Concomitant]
     Indication: HYPERTENSION
     Dosage: 25 MG, QD
     Route: 048
  19. ZANTAC [Concomitant]
     Indication: GASTROOESOPHAGEAL REFLUX DISEASE
     Dosage: 300 MG, TID
  20. METHOCARBAMOL [Concomitant]
     Indication: MYALGIA
     Dosage: 750 MG, PRN

REACTIONS (4)
  - CHRONIC OBSTRUCTIVE PULMONARY DISEASE [None]
  - AMNESIA [None]
  - BEDRIDDEN [None]
  - EMPHYSEMA [None]
